FAERS Safety Report 10974230 (Version 1)
Quarter: 2015Q2

REPORT INFORMATION
  Report Type: Spontaneous
  Country: FR (occurrence: FR)
  Receive Date: 20150401
  Receipt Date: 20150401
  Transmission Date: 20150821
  Serious: Yes (Life-Threatening, Hospitalization)
  Sender: FDA-Public Use
  Company Number: FR-NOVOPROD-439859

PATIENT
  Age: 5 Year
  Sex: Male
  Weight: 22 kg

DRUGS (7)
  1. NOVOSEVEN [Suspect]
     Active Substance: COAGULATION FACTOR VIIA RECOMBINANT HUMAN
     Dosage: 16 MG
     Route: 042
     Dates: start: 20150213, end: 20150213
  2. NOVOSEVEN [Suspect]
     Active Substance: COAGULATION FACTOR VIIA RECOMBINANT HUMAN
     Dosage: 29 MG
     Route: 042
     Dates: start: 20150216, end: 20150216
  3. NOVOSEVEN [Suspect]
     Active Substance: COAGULATION FACTOR VIIA RECOMBINANT HUMAN
     Dosage: 15 MG
     Route: 042
     Dates: start: 20150217, end: 20150217
  4. NOVOSEVEN [Suspect]
     Active Substance: COAGULATION FACTOR VIIA RECOMBINANT HUMAN
     Dosage: 29 MG
     Route: 042
     Dates: start: 20150214, end: 20150214
  5. EXACYL [Concomitant]
     Active Substance: TRANEXAMIC ACID
     Dosage: UNK
     Route: 065
  6. NOVOSEVEN [Suspect]
     Active Substance: COAGULATION FACTOR VIIA RECOMBINANT HUMAN
     Indication: CONGENITAL THROMBOCYTE DISORDER
     Dosage: 8 MG
     Route: 042
     Dates: start: 20150212, end: 20150212
  7. NOVOSEVEN [Suspect]
     Active Substance: COAGULATION FACTOR VIIA RECOMBINANT HUMAN
     Dosage: 35 MG
     Route: 042
     Dates: start: 20150215, end: 20150215

REACTIONS (3)
  - Epistaxis [Recovered/Resolved]
  - Anaemia [Recovered/Resolved]
  - Drug effect incomplete [Unknown]

NARRATIVE: CASE EVENT DATE: 20150212
